FAERS Safety Report 17387730 (Version 1)
Quarter: 2020Q1

REPORT INFORMATION
  Report Type: Spontaneous
  Country: US (occurrence: US)
  Receive Date: 20200206
  Receipt Date: 20200206
  Transmission Date: 20200409
  Serious: No
  Sender: FDA-Public Use
  Company Number: US-RADIUS HEALTH INC.-2020US000038

PATIENT
  Sex: Female

DRUGS (1)
  1. TYMLOS [Suspect]
     Active Substance: ABALOPARATIDE
     Indication: OSTEOPOROSIS POSTMENOPAUSAL
     Dosage: 80 MCG
     Dates: start: 20191213

REACTIONS (7)
  - Insomnia [Unknown]
  - Dizziness [Unknown]
  - Anxiety [Unknown]
  - Limb discomfort [Unknown]
  - Muscular weakness [Unknown]
  - Palpitations [Unknown]
  - Pruritus [Unknown]
